FAERS Safety Report 7742578 (Version 4)
Quarter: 2013Q4

REPORT INFORMATION
  Report Type: Spontaneous
  Country: US (occurrence: US)
  Receive Date: 20101229
  Receipt Date: 20131118
  Transmission Date: 20140711
  Serious: Yes (Hospitalization)
  Sender: FDA-Public Use
  Company Number: US-BAYER-2010-008029

PATIENT
  Age: 36 Year
  Sex: Female
  Weight: 88.44 kg

DRUGS (16)
  1. YAZ [Suspect]
     Dosage: UNK
     Route: 048
     Dates: start: 20080819, end: 200903
  2. XANAX [Concomitant]
     Dosage: 5 MG, UNK
     Route: 048
  3. CYMBALTA [Concomitant]
     Dosage: 30 MG, UNK
     Route: 048
  4. CELEBREX [Concomitant]
     Dosage: 200 MG, UNK
     Route: 048
  5. TOPAMAX [Concomitant]
     Dosage: 100 MG, UNK
     Route: 048
  6. SINGULAIR [Concomitant]
     Dosage: 10 MG, UNK
     Route: 048
  7. XYZAL [Concomitant]
     Dosage: 5 MG, UNK
     Route: 048
  8. LORTAB [Concomitant]
     Dosage: 500 MG, UNK
     Route: 048
     Dates: start: 20091219
  9. CIPRO [Concomitant]
     Dosage: 500 MG, UNK
     Route: 048
     Dates: start: 20091219
  10. RANITIDINE [Concomitant]
     Dosage: 300 MG, UNK
     Route: 048
  11. TORADOL [Concomitant]
     Dosage: 30 MG, UNK
     Dates: start: 20091219
  12. BENADRYL [Concomitant]
     Route: 048
  13. B2 ASMEDIC [Concomitant]
     Dosage: 400 MG, UNK
     Route: 048
  14. B12 [Concomitant]
     Route: 030
  15. MAGNESIA [MAGNESIUM OXIDE] [Concomitant]
     Dosage: 400 MG, UNK
     Route: 048
  16. VITCOFOL [Concomitant]
     Dosage: 500 MG, UNK
     Route: 048

REACTIONS (9)
  - Cholelithiasis [None]
  - Cholelithiasis [None]
  - Vitamin D decreased [None]
  - Vitamin B12 decreased [None]
  - Anxiety [None]
  - Pain [None]
  - Injury [None]
  - Diarrhoea [None]
  - Nausea [None]
